FAERS Safety Report 5379654-1 (Version None)
Quarter: 2007Q3

REPORT INFORMATION
  Report Type: 
  Country: None (occurrence: None)
  Receive Date: 20070706
  Receipt Date: 20070622
  Transmission Date: 20080115
  Serious: Yes (Other)
  Sender: FDA-Public Use
  Company Number: PHBS2007JP10789

PATIENT
  Age: 53 Year
  Sex: Female

DRUGS (3)
  1. LOCHOL [Suspect]
     Indication: HYPERCHOLESTEROLAEMIA
     Dosage: 40 MG/DAY
     Route: 048
     Dates: start: 20030922, end: 20070301
  2. NORVASC [Concomitant]
     Dosage: 2.5 MG, UNK
     Route: 048
     Dates: start: 20030922
  3. FLUITRAN [Concomitant]
     Dosage: 1 MG, UNK
     Route: 048
     Dates: start: 20031015

REACTIONS (1)
  - BLOOD CHOLINESTERASE INCREASED [None]
